APPROVED DRUG PRODUCT: COR-OTICIN
Active Ingredient: HYDROCORTISONE ACETATE; NEOMYCIN SULFATE
Strength: 1.5%;EQ 3.5MG BASE/ML
Dosage Form/Route: SUSPENSION/DROPS;OPHTHALMIC
Application: A060188 | Product #001
Applicant: EPIC PHARMA LLC
Approved: Approved Prior to Jan 1, 1982 | RLD: No | RS: No | Type: DISCN